FAERS Safety Report 20569497 (Version 1)
Quarter: 2022Q1

REPORT INFORMATION
  Report Type: Spontaneous
  Country: FR (occurrence: FR)
  Receive Date: 20220309
  Receipt Date: 20220309
  Transmission Date: 20220423
  Serious: Yes (Hospitalization, Congenital Anomaly, Other)
  Sender: FDA-Public Use
  Company Number: FR-ABBVIE-22K-056-4305355-00

PATIENT
  Sex: Male
  Weight: 2.76 kg

DRUGS (2)
  1. VALPROATE SODIUM [Suspect]
     Active Substance: VALPROATE SODIUM
     Indication: Maternal exposure timing unspecified
     Route: 064
  2. CLONAZEPAM [Suspect]
     Active Substance: CLONAZEPAM
     Indication: Maternal exposure timing unspecified
     Route: 064

REACTIONS (33)
  - Intellectual disability [Unknown]
  - Depressed level of consciousness [Unknown]
  - Language disorder [Unknown]
  - Psychomotor skills impaired [Unknown]
  - Mental disorder [Unknown]
  - Gait disturbance [Unknown]
  - Balance disorder [Unknown]
  - Fine motor skill dysfunction [Unknown]
  - Speech disorder developmental [Unknown]
  - Encopresis [Unknown]
  - Drooling [Unknown]
  - Motor developmental delay [Unknown]
  - Social problem [Unknown]
  - Psychotic disorder [Unknown]
  - Hypoacusis [Unknown]
  - Ear infection [Unknown]
  - Laryngitis [Unknown]
  - Nasopharyngitis [Unknown]
  - Adenoidal hypertrophy [Unknown]
  - Regressive behaviour [Unknown]
  - Fatigue [Unknown]
  - Seizure [Unknown]
  - Cognitive disorder [Unknown]
  - Psychomotor hyperactivity [Unknown]
  - Disturbance in attention [Unknown]
  - Macrocephaly [Unknown]
  - Agitation [Unknown]
  - Behaviour disorder [Unknown]
  - Urinary incontinence [Unknown]
  - Aggression [Unknown]
  - Anxiety [Unknown]
  - Developmental delay [Unknown]
  - Foetal exposure during pregnancy [Unknown]

NARRATIVE: CASE EVENT DATE: 20040404
